FAERS Safety Report 7712512-3 (Version None)
Quarter: 2011Q3

REPORT INFORMATION
  Report Type: 
  Country: None (occurrence: None)
  Receive Date: 20110826
  Receipt Date: 20110822
  Transmission Date: 20111222
  Serious: Yes (Other)
  Sender: FDA-Public Use
  Company Number: MX-UCBSA-039184

PATIENT
  Sex: Female
  Weight: 70 kg

DRUGS (5)
  1. VIMPAT [Suspect]
     Route: 048
     Dates: start: 20110701, end: 20110701
  2. VIMPAT [Suspect]
     Indication: EPILEPSY
     Route: 048
     Dates: start: 20110401, end: 20110601
  3. TRILEPTAL [Concomitant]
     Indication: EPILEPSY
     Route: 048
     Dates: start: 20010101
  4. VALPROATE SODIUM [Concomitant]
     Indication: EPILEPSY
     Route: 048
     Dates: start: 20010101
  5. CLONAZEPAM [Concomitant]
     Indication: EPILEPSY
     Route: 048
     Dates: start: 20010101

REACTIONS (6)
  - BALANCE DISORDER [None]
  - TREMOR [None]
  - DYSLALIA [None]
  - VISION BLURRED [None]
  - MYDRIASIS [None]
  - VERTIGO [None]
